FAERS Safety Report 19832123 (Version 1)
Quarter: 2021Q3

REPORT INFORMATION
  Report Type: Spontaneous
  Country: US (occurrence: US)
  Receive Date: 20210915
  Receipt Date: 20210915
  Transmission Date: 20211014
  Serious: No
  Sender: FDA-Public Use
  Company Number: US-BAYER-2021-211295

PATIENT
  Age: 84 Year
  Sex: Male

DRUGS (3)
  1. LASIX [Concomitant]
     Active Substance: FUROSEMIDE
  2. BAYER LOW DOSE [Concomitant]
     Active Substance: ASPIRIN
  3. MIRALAX [Suspect]
     Active Substance: POLYETHYLENE GLYCOL 3350
     Indication: THYROIDITIS
     Dosage: 2 DF, QD
     Route: 048
     Dates: start: 20210911, end: 20210911

REACTIONS (2)
  - Off label use [Unknown]
  - Abdominal pain [Recovered/Resolved]

NARRATIVE: CASE EVENT DATE: 202109
